FAERS Safety Report 9628974 (Version 1)
Quarter: 2013Q4

REPORT INFORMATION
  Report Type: Other
  Country: GB (occurrence: GB)
  Receive Date: 20131017
  Receipt Date: 20131017
  Transmission Date: 20140711
  Serious: Yes (Death, Hospitalization, Other)
  Sender: FDA-Public Use
  Company Number: GB-TARO PHARMACEUTICALS U.S.A., INC-2013SUN04830

PATIENT
  Age: 82 Year
  Sex: Female

DRUGS (10)
  1. WARFARIN [Suspect]
     Indication: ATRIAL FIBRILLATION
     Dosage: UNK
     Route: 065
     Dates: end: 20121218
  2. RIVAROXABAN [Interacting]
     Indication: ATRIAL FIBRILLATION
     Dosage: 20 MG, OD
     Route: 048
     Dates: start: 20121218, end: 20121222
  3. RIVAROXABAN [Interacting]
     Indication: PULMONARY EMBOLISM
  4. CALCIUM [Concomitant]
  5. DIGOXIN [Concomitant]
  6. LAXATIVE [Concomitant]
  7. PAROXETINE [Concomitant]
  8. PIROXICAM [Concomitant]
  9. TEMAZEPAM [Concomitant]
  10. VITAMIN D [Concomitant]

REACTIONS (2)
  - Drug interaction [Unknown]
  - Haemorrhage [Fatal]
